FAERS Safety Report 5683721-2 (Version None)
Quarter: 2008Q1

REPORT INFORMATION
  Report Type: 
  Country: None (occurrence: None)
  Receive Date: 20080328
  Receipt Date: 20070110
  Transmission Date: 20080703
  Serious: Yes (Other)
  Sender: FDA-Public Use
  Company Number: US-BAYER-US-2006-023949

PATIENT
  Age: 32 Year
  Sex: Female
  Weight: 60 kg

DRUGS (2)
  1. MIRENA [Suspect]
     Route: 015
     Dates: start: 20031124, end: 20060811
  2. CLARITIN [Concomitant]
     Indication: MULTIPLE ALLERGIES

REACTIONS (5)
  - AMENORRHOEA [None]
  - CERVICAL DYSPLASIA [None]
  - CERVICITIS HUMAN PAPILLOMA VIRUS [None]
  - DYSPAREUNIA [None]
  - IUD MIGRATION [None]
